FAERS Safety Report 23856317 (Version 1)
Quarter: 2024Q2

REPORT INFORMATION
  Report Type: Spontaneous
  Country: US (occurrence: US)
  Receive Date: 20240515
  Receipt Date: 20240515
  Transmission Date: 20240716
  Serious: No
  Sender: FDA-Public Use
  Company Number: US-002147023-NVSC2024US097516

PATIENT

DRUGS (7)
  1. VALSARTAN [Suspect]
     Active Substance: VALSARTAN
     Indication: Product used for unknown indication
     Dosage: UNK (3 DOSES OF 40MB)
     Route: 065
  2. LOSARTAN [Suspect]
     Active Substance: LOSARTAN
     Indication: Product used for unknown indication
     Dosage: 25 MG (6 MONTHS OF 25 MG)
     Route: 065
  3. LOSARTAN [Suspect]
     Active Substance: LOSARTAN
     Dosage: 50 MG (BUMPED ME TO 50MG)
     Route: 065
  4. LOSARTAN [Suspect]
     Active Substance: LOSARTAN
     Dosage: 25 MG (BACK TO THE 25MG)
     Route: 065
  5. LOSARTAN [Suspect]
     Active Substance: LOSARTAN
     Dosage: 40 MG (PATIENT ON 40MG OF LOSARTAN)
     Route: 065
  6. LISINOPRIL [Suspect]
     Active Substance: LISINOPRIL
     Indication: Product used for unknown indication
     Dosage: UNK
     Route: 065
  7. AMLODIPINE [Suspect]
     Active Substance: AMLODIPINE BESYLATE
     Indication: Product used for unknown indication
     Dosage: UNK
     Route: 065

REACTIONS (6)
  - Gastrooesophageal reflux disease [Unknown]
  - Pharyngeal swelling [Unknown]
  - Constipation [Unknown]
  - Dyspepsia [Unknown]
  - Swollen tongue [Unknown]
  - Oedema [Unknown]
